FAERS Safety Report 8132165 (Version 2)
Quarter: 2014Q1

REPORT INFORMATION
  Report Type: Spontaneous
  Country: US (occurrence: US)
  Receive Date: 20110913
  Receipt Date: 20140306
  Transmission Date: 20141002
  Serious: Yes (Hospitalization)
  Sender: FDA-Public Use
  Company Number: US-RANBAXY-2011US-47426

PATIENT
  Age: 65 Year
  Sex: Male

DRUGS (1)
  1. ACYCLOVIR [Suspect]
     Indication: HERPES VIRUS INFECTION
     Dosage: 500MG OF 800 MG PILLS, FIVE TIMES DAILY
     Route: 048

REACTIONS (2)
  - Mental status changes [Recovered/Resolved]
  - Toxicity to various agents [Unknown]
